FAERS Safety Report 6756441-0 (Version None)
Quarter: 2010Q2

REPORT INFORMATION
  Report Type: 
  Country: None (occurrence: None)
  Receive Date: 20100604
  Receipt Date: 20100601
  Transmission Date: 20101027
  Serious: Yes (Other)
  Sender: FDA-Public Use
  Company Number: A0862242A

PATIENT
  Sex: Female

DRUGS (1)
  1. ADVAIR DISKUS 100/50 [Suspect]
     Indication: ASTHMA
     Route: 055
     Dates: start: 20100513

REACTIONS (6)
  - ARTHRALGIA [None]
  - ASTHMA [None]
  - FLATULENCE [None]
  - GASTRIC DISORDER [None]
  - INHALATION THERAPY [None]
  - PAIN [None]
